FAERS Safety Report 6888106-9 (Version None)
Quarter: 2010Q3

REPORT INFORMATION
  Report Type: 
  Country: None (occurrence: None)
  Receive Date: 20100730
  Receipt Date: 20100407
  Transmission Date: 20110219
  Serious: Yes (Other)
  Sender: FDA-Public Use
  Company Number: CO-PFIZER INC-2010091298

PATIENT
  Age: 49 Year
  Sex: Female

DRUGS (3)
  1. LIPITOR [Suspect]
     Dosage: 40 MG, 1X/DAY
     Route: 048
     Dates: start: 20090202
  2. NEXIUM [Concomitant]
     Indication: GASTROOESOPHAGEAL REFLUX DISEASE
     Dosage: 40 MG, 1X/DAY
  3. SYNTHROID [Concomitant]
     Indication: THYROID DISORDER
     Dosage: 75 MG, 1X/DAY

REACTIONS (1)
  - BLOOD CHOLESTEROL INCREASED [None]
